FAERS Safety Report 6252631-4 (Version None)
Quarter: 2009Q2

REPORT INFORMATION
  Report Type: 
  Country: None (occurrence: None)
  Receive Date: 20090629
  Receipt Date: 20090629
  Transmission Date: 20091009
  Serious: No
  Sender: FDA-Public Use
  Company Number: None

PATIENT
  Age: 67 Year
  Sex: Male
  Weight: 86.1834 kg

DRUGS (2)
  1. CIPRO [Suspect]
     Indication: URINARY RETENTION
     Dosage: 1 PILL TWICE A DAY PO
     Route: 048
     Dates: start: 20090622, end: 20090625
  2. CIPRO [Concomitant]

REACTIONS (3)
  - DRUG INEFFECTIVE [None]
  - PATHOGEN RESISTANCE [None]
  - STAPHYLOCOCCAL INFECTION [None]
